FAERS Safety Report 9953772 (Version 1)
Quarter: 2014Q1

REPORT INFORMATION
  Report Type: Spontaneous
  Country: US (occurrence: US)
  Receive Date: 20140304
  Receipt Date: 20140304
  Transmission Date: 20141002
  Serious: No
  Sender: FDA-Public Use
  Company Number: US-AMGEN-USASP2013076066

PATIENT
  Age: 57 Year
  Sex: Female
  Weight: 111.57 kg

DRUGS (17)
  1. ENBREL [Suspect]
     Indication: PSORIATIC ARTHROPATHY
     Dosage: 50 MG, QWK
     Route: 058
  2. SINGULAIR [Concomitant]
     Dosage: 10 MG, UNK
     Route: 048
  3. BUSPAR [Concomitant]
     Dosage: 10 MG, UNK
     Route: 048
  4. TRAMADOL HCL [Concomitant]
     Dosage: 100 MG, UNK
     Route: 048
  5. LEVOTHYROXIN [Concomitant]
     Dosage: 175 MUG, UNK
     Route: 048
  6. LEVOTHYROXIN [Concomitant]
     Dosage: 100 MUG, UNK
     Route: 048
  7. GABAPENTIN [Concomitant]
     Dosage: 100 MG, UNK
     Route: 048
  8. METFORMIN [Concomitant]
     Dosage: 500 MG, QD
     Route: 048
  9. LISINOPRIL [Concomitant]
     Dosage: 40 MG, UNK
     Route: 048
  10. METHOTREXATE [Concomitant]
     Dosage: 2.5 MG, UNK
     Route: 048
  11. MULTIVITAMINS, PLAIN [Concomitant]
     Dosage: UNK
     Route: 048
  12. FISH OIL [Concomitant]
     Dosage: UNK
     Route: 048
  13. VITAMIN D3 [Concomitant]
     Dosage: 5000 UNIT, UNK
     Route: 048
  14. FOLIC ACID [Concomitant]
     Dosage: UNK
     Route: 048
  15. VITAMIN C                          /00008001/ [Concomitant]
     Dosage: 100 MG, UNK
     Route: 048
  16. VITAMIN B [Concomitant]
     Dosage: UNK
     Route: 048
  17. XYZAL [Concomitant]
     Dosage: 5 MG, UNK
     Route: 048

REACTIONS (4)
  - Confusional state [Unknown]
  - Neck pain [Unknown]
  - Musculoskeletal pain [Unknown]
  - Dizziness [Unknown]
